FAERS Safety Report 22301019 (Version 1)
Quarter: 2023Q2

REPORT INFORMATION
  Report Type: Spontaneous
  Country: US (occurrence: US)
  Receive Date: 20230509
  Receipt Date: 20230509
  Transmission Date: 20230721
  Serious: No
  Sender: FDA-Public Use
  Company Number: US-SA-SAC20230503000549

PATIENT
  Age: 50 Year
  Sex: Male

DRUGS (13)
  1. DUPIXENT [Suspect]
     Active Substance: DUPILUMAB
     Indication: Psoriasis
     Dosage: 300 MG, QOW
     Route: 058
     Dates: start: 20210702
  2. DUPIXENT [Suspect]
     Active Substance: DUPILUMAB
     Indication: Dermatitis atopic
  3. CHANTIX [Concomitant]
     Active Substance: VARENICLINE TARTRATE
  4. CLOBETASOL [Concomitant]
     Active Substance: CLOBETASOL
  5. FLUOCINONIDE [Concomitant]
     Active Substance: FLUOCINONIDE
  6. KENALOG [Concomitant]
     Active Substance: TRIAMCINOLONE ACETONIDE
  7. SILDENAFIL [Concomitant]
     Active Substance: SILDENAFIL
  8. SIMVASTATIN [Concomitant]
     Active Substance: SIMVASTATIN
  9. SULFACET [SULFACETAMIDE SODIUM] [Concomitant]
  10. TADALAFIL [Concomitant]
     Active Substance: TADALAFIL
  11. ZOLPIDEM [Concomitant]
     Active Substance: ZOLPIDEM TARTRATE
  12. TRIAMCINOLONE [Concomitant]
     Active Substance: TRIAMCINOLONE
  13. HYDROCORT [HYDROCORTISONE] [Concomitant]

REACTIONS (2)
  - Drug ineffective [Unknown]
  - Product use in unapproved indication [Unknown]

NARRATIVE: CASE EVENT DATE: 20210702
